FAERS Safety Report 21242154 (Version 2)
Quarter: 2023Q1

REPORT INFORMATION
  Report Type: Spontaneous
  Country: FR (occurrence: FR)
  Receive Date: 20220823
  Receipt Date: 20230104
  Transmission Date: 20230417
  Serious: Yes (Other)
  Sender: FDA-Public Use
  Company Number: FR-ROCHE-3155545

PATIENT
  Age: 68 Year
  Sex: Female
  Weight: 38 kg

DRUGS (4)
  1. CARBOPLATIN [Suspect]
     Active Substance: CARBOPLATIN
     Indication: Ovarian cancer recurrent
     Dosage: 220 MILLIGRAM (ON 21/OCT/2022, DATE OF LAST ADMINISTRATION OF CARBOPLATINE)
     Route: 042
     Dates: start: 20210617
  2. GEMCITABINE [Suspect]
     Active Substance: GEMCITABINE
     Indication: Ovarian cancer recurrent
     Dosage: 780 MILLIGRAM (ON 21/OCT/2022, DATE OF LAST ADMINISTRATION OF GEMCITABINE)
     Route: 048
     Dates: start: 20210617
  3. ATEZOLIZUMAB [Suspect]
     Active Substance: ATEZOLIZUMAB
     Indication: Ovarian cancer recurrent
     Dosage: ON 04/MAY/2022, DATE OF LAST ADMINISTRATION OF ATEZOLIZUMAB
     Route: 042
     Dates: start: 20210617
  4. NIRAPARIB [Suspect]
     Active Substance: NIRAPARIB
     Indication: Ovarian cancer recurrent
     Dosage: ON 27/MAY/2022, DATE OF LAST ADMINISTRATION OF NIRAPARIB
     Route: 048
     Dates: start: 20211202

REACTIONS (1)
  - Hypothyroidism [Recovered/Resolved]

NARRATIVE: CASE EVENT DATE: 20220525
